FAERS Safety Report 11159689 (Version 1)
Quarter: 2015Q2

REPORT INFORMATION
  Report Type: Spontaneous
  Country: US (occurrence: None)
  Receive Date: 20150602
  Receipt Date: 20150602
  Transmission Date: 20150821
  Serious: Yes (Disabling)
  Sender: FDA-Public Use
  Company Number: None

PATIENT
  Age: 41 Year
  Sex: Female
  Weight: 58.51 kg

DRUGS (1)
  1. LEVOFLOXACIN. [Suspect]
     Active Substance: LEVOFLOXACIN
     Indication: URTICARIA
     Dosage: 1 TABLET DAILY  ONCE DAILY  TAKEN BY MOUTH
     Route: 048
     Dates: start: 20150506, end: 20150510

REACTIONS (6)
  - Confusional state [None]
  - Depression [None]
  - Arthralgia [None]
  - Urticaria [None]
  - Myalgia [None]
  - Malaise [None]

NARRATIVE: CASE EVENT DATE: 20150508
